FAERS Safety Report 16428086 (Version 1)
Quarter: 2019Q2

REPORT INFORMATION
  Report Type: Spontaneous
  Country: PL (occurrence: PL)
  Receive Date: 20190613
  Receipt Date: 20190613
  Transmission Date: 20190711
  Serious: Yes (Other)
  Sender: FDA-Public Use
  Company Number: PL-ELI_LILLY_AND_COMPANY-PL201906004788

PATIENT
  Age: 59 Year
  Sex: Female

DRUGS (1)
  1. LIPROLOG LISPRO [Suspect]
     Active Substance: INSULIN LISPRO
     Indication: TYPE 2 DIABETES MELLITUS
     Dosage: UNK, EVERY 8 HRS
     Route: 065
     Dates: start: 20181210, end: 20190103

REACTIONS (4)
  - Hyperhidrosis [Unknown]
  - Heart rate increased [Unknown]
  - Dyspnoea [Unknown]
  - Decreased appetite [Unknown]

NARRATIVE: CASE EVENT DATE: 201812
